FAERS Safety Report 13132649 (Version 1)
Quarter: 2017Q1

REPORT INFORMATION
  Report Type: Report from Study
  Country: NL (occurrence: NL)
  Receive Date: 20170120
  Receipt Date: 20170120
  Transmission Date: 20170428
  Serious: Yes (Death)
  Sender: FDA-Public Use
  Company Number: NL-ACCORD-047324

PATIENT
  Age: 62 Year

DRUGS (3)
  1. CISPLATIN. [Suspect]
     Active Substance: CISPLATIN
     Indication: OESOPHAGEAL CARCINOMA
  2. EPIRUBICIN [Suspect]
     Active Substance: EPIRUBICIN
     Indication: OESOPHAGEAL CARCINOMA
  3. CAPECITABINE. [Suspect]
     Active Substance: CAPECITABINE
     Indication: OESOPHAGEAL CARCINOMA

REACTIONS (5)
  - Thrombocytopenia [Fatal]
  - Leukopenia [Fatal]
  - Off label use [Unknown]
  - Diarrhoea [Fatal]
  - Mucosal inflammation [Fatal]
